FAERS Safety Report 9494407 (Version 1)
Quarter: 2013Q3

REPORT INFORMATION
  Report Type: Spontaneous
  Country: US (occurrence: None)
  Receive Date: 20130830
  Receipt Date: 20130830
  Transmission Date: 20140515
  Serious: Yes (Death)
  Sender: FDA-Public Use
  Company Number: None

PATIENT
  Age: 76 Year
  Sex: Female

DRUGS (1)
  1. AFINITOR [Suspect]
     Indication: RENAL CANCER
     Route: 048
     Dates: start: 20130802, end: 20130825

REACTIONS (2)
  - Sepsis [None]
  - Neutropenia [None]
